FAERS Safety Report 7358420-1 (Version None)
Quarter: 2011Q1

REPORT INFORMATION
  Report Type: 
  Country: None (occurrence: None)
  Receive Date: 20110317
  Receipt Date: 20110311
  Transmission Date: 20110831
  Serious: Yes (Death, Hospitalization, Other)
  Sender: FDA-Public Use
  Company Number: US-PFIZER INC-2006031650

PATIENT
  Sex: Male

DRUGS (4)
  1. AMBIEN [Suspect]
     Indication: SLEEP DISORDER
  2. DARVOCET [Concomitant]
     Route: 065
  3. SOMA [Suspect]
     Indication: PAIN
  4. NEURONTIN [Suspect]
     Indication: PAIN

REACTIONS (6)
  - ASPIRATION [None]
  - DYSPNOEA [None]
  - CIRCULATORY COLLAPSE [None]
  - VOMITING [None]
  - INTENTIONAL OVERDOSE [None]
  - COMPLETED SUICIDE [None]
